FAERS Safety Report 9836660 (Version 1)
Quarter: 2013Q4

REPORT INFORMATION
  Report Type: Spontaneous
  Country: US (occurrence: None)
  Receive Date: 20131121
  Receipt Date: 20131121
  Transmission Date: 20140711
  Serious: Yes (Other)
  Sender: FDA-Public Use
  Company Number: 1000047549

PATIENT
  Age: 64 Year
  Sex: Female

DRUGS (3)
  1. TUDORZA PRESSAIR [Suspect]
     Indication: CHRONIC OBSTRUCTIVE PULMONARY DISEASE
     Dosage: 400 MCG, 1 IN 1 D
     Route: 055
     Dates: start: 201307, end: 20130712
  2. IPRATROPIUM BROMIDE/ALBUTEROL SULFATE [Concomitant]
  3. ADVAIR [Concomitant]

REACTIONS (2)
  - Pleurisy [None]
  - Oropharyngeal pain [None]
